FAERS Safety Report 6455653-3 (Version None)
Quarter: 2009Q4

REPORT INFORMATION
  Report Type: 
  Country: None (occurrence: None)
  Receive Date: 20091125
  Receipt Date: 20090916
  Transmission Date: 20100525
  Serious: No
  Sender: FDA-Public Use
  Company Number: US-ABBOTT-09P-163-0597990-00

PATIENT
  Sex: Female
  Weight: 63.56 kg

DRUGS (8)
  1. SIMCOR [Suspect]
     Indication: BLOOD CHOLESTEROL INCREASED
     Dosage: 750/20 ONCE DAILY
     Dates: start: 20090301, end: 20090801
  2. SIMCOR [Suspect]
     Dosage: 1000/20 ONCE DAILY
     Dates: start: 20090801
  3. SIMCOR [Suspect]
     Dosage: 750/20 MILLIGRAMS
     Dates: start: 20090916
  4. ZETIA [Concomitant]
     Indication: DRUG USE FOR UNKNOWN INDICATION
  5. PLAVIX [Concomitant]
     Indication: CAROTID ARTERY STENT INSERTION
  6. PROTONIX [Concomitant]
     Indication: GASTRIC DISORDER
  7. VIT D [Concomitant]
     Indication: DRUG USE FOR UNKNOWN INDICATION
  8. HYDROCHLOROTHIAZIDE [Concomitant]
     Indication: BLOOD PRESSURE

REACTIONS (3)
  - DIZZINESS [None]
  - FATIGUE [None]
  - OROPHARYNGEAL PAIN [None]
